FAERS Safety Report 23550917 (Version 1)
Quarter: 2024Q1

REPORT INFORMATION
  Report Type: Report from Study
  Country: US (occurrence: US)
  Receive Date: 20240221
  Receipt Date: 20240221
  Transmission Date: 20240410
  Serious: Yes (Hospitalization, Other)
  Sender: FDA-Public Use
  Company Number: US-ABBVIE-5646899

PATIENT
  Age: 23 Year
  Sex: Male

DRUGS (2)
  1. RINVOQ [Suspect]
     Active Substance: UPADACITINIB
     Indication: Colitis ulcerative
     Dosage: FORM STRENGTH 15 MILLIGRAM?START DATE : 2023
     Route: 048
     Dates: end: 202312
  2. RINVOQ [Suspect]
     Active Substance: UPADACITINIB
     Indication: Colitis ulcerative
     Dosage: FORM STRENGTH 45 MILLIGRAM?FOR 8 WEEKS
     Route: 048
     Dates: start: 20230501, end: 202306

REACTIONS (4)
  - Colon operation [Unknown]
  - Ostomy bag placement [Unknown]
  - Stoma site discharge [Unknown]
  - Skin disorder [Unknown]

NARRATIVE: CASE EVENT DATE: 20240108
